FAERS Safety Report 22055612 (Version 2)
Quarter: 2023Q1

REPORT INFORMATION
  Report Type: Spontaneous
  Country: US (occurrence: US)
  Receive Date: 20230302
  Receipt Date: 20230307
  Transmission Date: 20230417
  Serious: Yes (Other)
  Sender: FDA-Public Use
  Company Number: US-PFIZER INC-PV202300039330

PATIENT
  Age: 43 Year
  Sex: Male

DRUGS (2)
  1. BENEFIX [Suspect]
     Active Substance: COAGULATION FACTOR IX RECOMBINANT HUMAN\ISOPROPYL ALCOHOL
     Dosage: 3000 IU, AS NEEDED (EVERY 12 24 HRS AS NEEDED FOR MINOR BLEED)
     Route: 042
  2. BENEFIX [Suspect]
     Active Substance: COAGULATION FACTOR IX RECOMBINANT HUMAN\ISOPROPYL ALCOHOL
     Dosage: 6000 IU, AS NEEDED EVERY 24 HRS AS NEEDED FOR MAJOR BLEED)
     Route: 042

REACTIONS (1)
  - Haemorrhage [Unknown]
